FAERS Safety Report 7268871-1 (Version None)
Quarter: 2011Q1

REPORT INFORMATION
  Report Type: 
  Country: None (occurrence: None)
  Receive Date: 20110201
  Receipt Date: 20110120
  Transmission Date: 20110831
  Serious: Yes (Hospitalization, Other)
  Sender: FDA-Public Use
  Company Number: US-PFIZER INC-2011014712

PATIENT
  Sex: Male

DRUGS (3)
  1. PRISTIQ [Suspect]
     Indication: DEPRESSION
     Dosage: 50 MG, DAILY
     Route: 048
  2. MELATONIN [Suspect]
     Indication: SLEEP DISORDER
     Dosage: 3 MG, DAILY
     Route: 048
  3. DILANTIN [Suspect]
     Indication: CONVULSION
     Dosage: 300 MG, DAILY

REACTIONS (5)
  - FALL [None]
  - DEPRESSION [None]
  - TOXICITY TO VARIOUS AGENTS [None]
  - GAIT DISTURBANCE [None]
  - URINARY TRACT INFECTION [None]
